FAERS Safety Report 16730249 (Version 1)
Quarter: 2019Q3

REPORT INFORMATION
  Report Type: Spontaneous
  Country: US (occurrence: US)
  Receive Date: 20190707
  Receipt Date: 20190707
  Transmission Date: 20191005
  Serious: No
  Sender: FDA-Public Use
  Company Number: None

PATIENT
  Age: 68 Year
  Sex: Female

DRUGS (1)
  1. DALFAMPRIDINE 10MG ER TAB [Suspect]
     Active Substance: DALFAMPRIDINE

REACTIONS (3)
  - Memory impairment [None]
  - Mental status changes [None]
  - Amnesia [None]

NARRATIVE: CASE EVENT DATE: 20190707
